FAERS Safety Report 25778345 (Version 1)
Quarter: 2025Q3

REPORT INFORMATION
  Report Type: Spontaneous
  Country: US (occurrence: None)
  Receive Date: 20250908
  Receipt Date: 20250908
  Transmission Date: 20251020
  Serious: Yes (Other)
  Sender: FDA-CTU
  Company Number: None

PATIENT
  Age: 63 Year
  Sex: Female
  Weight: 67.05 kg

DRUGS (6)
  1. BREZTRI [Suspect]
     Active Substance: BUDESONIDE\FORMOTEROL\GLYCOPYRROLATE
     Indication: Asthma
     Dosage: OTHER QUANTITY : 42 OUNCE(S);?FREQUENCY : TWICE A DAY;?
     Route: 055
     Dates: start: 20250822, end: 20250901
  2. HYDROCHLOROTHIAZIDE [Concomitant]
     Active Substance: HYDROCHLOROTHIAZIDE
  3. REPATHA [Concomitant]
     Active Substance: EVOLOCUMAB
  4. VITAMINS NOS [Concomitant]
     Active Substance: VITAMINS
  5. MAGNESIUM [Concomitant]
     Active Substance: MAGNESIUM
  6. VITAMIN D NOS [Concomitant]
     Active Substance: CHOLECALCIFEROL\ERGOCALCIFEROL

REACTIONS (4)
  - Dyspepsia [None]
  - Non-cardiac chest pain [None]
  - Oropharyngeal pain [None]
  - Vomiting [None]

NARRATIVE: CASE EVENT DATE: 20250829
